FAERS Safety Report 23831620 (Version 8)
Quarter: 2024Q3

REPORT INFORMATION
  Report Type: Spontaneous
  Country: US (occurrence: US)
  Receive Date: 20240508
  Receipt Date: 20240925
  Transmission Date: 20241016
  Serious: No
  Sender: PFIZER
  Company Number: US-PFIZER INC-202400102394

PATIENT
  Age: 5 Year
  Sex: Female
  Weight: 15.42 kg

DRUGS (1)
  1. GENOTROPIN [Suspect]
     Active Substance: SOMATROPIN
     Indication: Blood growth hormone abnormal
     Dosage: 0.5 MG ONCE A DAY BY INJECTION
     Route: 058
     Dates: start: 2023

REACTIONS (1)
  - Device mechanical issue [Recovered/Resolved]

NARRATIVE: CASE EVENT DATE: 20240401
